FAERS Safety Report 8183940-X (Version None)
Quarter: 2012Q1

REPORT INFORMATION
  Report Type: 
  Country: None (occurrence: None)
  Receive Date: 20120305
  Receipt Date: 20120227
  Transmission Date: 20120608
  Serious: No
  Sender: FDA-Public Use
  Company Number: US-PFIZER INC-2012026390

PATIENT
  Sex: Female
  Weight: 113 kg

DRUGS (4)
  1. DIOVAN [Concomitant]
     Indication: HYPERTENSION
     Dosage: ^12.5 MG^ DAILY
  2. CELEBREX [Concomitant]
     Indication: ARTHRITIS
     Dosage: 200 MG, DAILY
  3. TOVIAZ [Concomitant]
     Indication: URINARY INCONTINENCE
     Dosage: 8 MG DAILY
  4. EFFEXOR XR [Suspect]
     Indication: DEPRESSION
     Dosage: 150 MG, DAILY

REACTIONS (4)
  - FEELING ABNORMAL [None]
  - APHASIA [None]
  - AGITATION [None]
  - CRYING [None]
